FAERS Safety Report 17250941 (Version 1)
Quarter: 2020Q1

REPORT INFORMATION
  Report Type: Spontaneous
  Country: US (occurrence: US)
  Receive Date: 20200109
  Receipt Date: 20200109
  Transmission Date: 20200409
  Serious: Yes (Hospitalization, Other)
  Sender: FDA-Public Use
  Company Number: US-GLAXOSMITHKLINE-US2020GSK002125

PATIENT
  Age: 33 Year
  Sex: Female

DRUGS (1)
  1. EPOPROSTENOL. [Suspect]
     Active Substance: EPOPROSTENOL
     Indication: PULMONARY HYPERTENSION
     Dosage: UNK

REACTIONS (8)
  - Troponin increased [Recovered/Resolved]
  - Electrocardiogram ST segment elevation [Recovered/Resolved]
  - Loss of consciousness [Unknown]
  - Right ventricular dilatation [Unknown]
  - Right ventricular enlargement [Unknown]
  - Mental status changes [Recovering/Resolving]
  - Hypotension [Recovered/Resolved]
  - Product administration interrupted [Unknown]
